FAERS Safety Report 24623120 (Version 6)
Quarter: 2025Q1

REPORT INFORMATION
  Report Type: Spontaneous
  Country: CA (occurrence: CA)
  Receive Date: 20241115
  Receipt Date: 20250324
  Transmission Date: 20250409
  Serious: Yes (Hospitalization, Other)
  Sender: ALEXION PHARMACEUTICALS
  Company Number: CA-TAKEDA-2024TUS090717

PATIENT
  Age: 78 Year
  Weight: 93 kg

DRUGS (299)
  1. PULMICORT TURBUHALER [Suspect]
     Active Substance: BUDESONIDE
  2. CANDESARTAN CILEXETIL [Suspect]
     Active Substance: CANDESARTAN CILEXETIL
     Indication: Product used for unknown indication
     Dosage: 8 MILLIGRAM, QD
  3. DEXILANT [Suspect]
     Active Substance: DEXLANSOPRAZOLE
     Indication: Product used for unknown indication
     Route: 065
  4. DEXILANT [Suspect]
     Active Substance: DEXLANSOPRAZOLE
  5. INFLUENZA VIRUS VACCINE [Suspect]
     Active Substance: INFLUENZA VIRUS VACCINE
     Indication: Prophylaxis
  6. INFLUENZA VIRUS VACCINE [Suspect]
     Active Substance: INFLUENZA VIRUS VACCINE
  7. INFLUENZA VIRUS VACCINE [Suspect]
     Active Substance: INFLUENZA VIRUS VACCINE
  8. INFLUENZA VIRUS VACCINE [Suspect]
     Active Substance: INFLUENZA VIRUS VACCINE
  9. INFLUENZA VIRUS VACCINE [Suspect]
     Active Substance: INFLUENZA VIRUS VACCINE
  10. INFLUENZA VIRUS VACCINE [Suspect]
     Active Substance: INFLUENZA VIRUS VACCINE
  11. INFLUENZA VIRUS VACCINE [Suspect]
     Active Substance: INFLUENZA VIRUS VACCINE
  12. INFLUENZA VIRUS VACCINE [Suspect]
     Active Substance: INFLUENZA VIRUS VACCINE
  13. INFLUENZA VIRUS VACCINE [Suspect]
     Active Substance: INFLUENZA VIRUS VACCINE
  14. INFLUENZA VIRUS VACCINE [Suspect]
     Active Substance: INFLUENZA VIRUS VACCINE
  15. INFLUENZA VIRUS VACCINE [Suspect]
     Active Substance: INFLUENZA VIRUS VACCINE
  16. INFLUENZA VIRUS VACCINE [Suspect]
     Active Substance: INFLUENZA VIRUS VACCINE
  17. INFLUENZA VIRUS VACCINE [Suspect]
     Active Substance: INFLUENZA VIRUS VACCINE
  18. INFLUENZA VIRUS VACCINE [Suspect]
     Active Substance: INFLUENZA VIRUS VACCINE
  19. INFLUENZA VIRUS VACCINE [Suspect]
     Active Substance: INFLUENZA VIRUS VACCINE
  20. LANSOPRAZOLE [Suspect]
     Active Substance: LANSOPRAZOLE
     Indication: Gastrooesophageal reflux disease
  21. LANSOPRAZOLE [Suspect]
     Active Substance: LANSOPRAZOLE
  22. LANSOPRAZOLE [Suspect]
     Active Substance: LANSOPRAZOLE
  23. PANTOPRAZOLE SODIUM [Suspect]
     Active Substance: PANTOPRAZOLE SODIUM
     Indication: Immunisation
     Dosage: 10 MILLIGRAM, QD
  24. PANTOPRAZOLE SODIUM [Suspect]
     Active Substance: PANTOPRAZOLE SODIUM
  25. PANTOPRAZOLE SODIUM [Suspect]
     Active Substance: PANTOPRAZOLE SODIUM
  26. PANTOPRAZOLE SODIUM [Suspect]
     Active Substance: PANTOPRAZOLE SODIUM
  27. PANTOPRAZOLE SODIUM [Suspect]
     Active Substance: PANTOPRAZOLE SODIUM
  28. PANTOPRAZOLE SODIUM [Suspect]
     Active Substance: PANTOPRAZOLE SODIUM
  29. PANTOPRAZOLE SODIUM [Suspect]
     Active Substance: PANTOPRAZOLE SODIUM
  30. PANTOPRAZOLE SODIUM [Suspect]
     Active Substance: PANTOPRAZOLE SODIUM
     Dosage: 8 MILLIGRAM, QD
  31. PANTOPRAZOLE SODIUM [Suspect]
     Active Substance: PANTOPRAZOLE SODIUM
  32. PANTOPRAZOLE SODIUM [Suspect]
     Active Substance: PANTOPRAZOLE SODIUM
  33. PANTOPRAZOLE SODIUM [Suspect]
     Active Substance: PANTOPRAZOLE SODIUM
  34. PANTOPRAZOLE SODIUM [Suspect]
     Active Substance: PANTOPRAZOLE SODIUM
  35. PANTOPRAZOLE SODIUM [Suspect]
     Active Substance: PANTOPRAZOLE SODIUM
  36. PANTOPRAZOLE SODIUM [Suspect]
     Active Substance: PANTOPRAZOLE SODIUM
  37. PANTOPRAZOLE SODIUM [Suspect]
     Active Substance: PANTOPRAZOLE SODIUM
  38. PANTOPRAZOLE SODIUM [Suspect]
     Active Substance: PANTOPRAZOLE SODIUM
  39. PANTOPRAZOLE SODIUM [Suspect]
     Active Substance: PANTOPRAZOLE SODIUM
     Dosage: 100 MILLIGRAM, QD
  40. PANTOPRAZOLE SODIUM [Suspect]
     Active Substance: PANTOPRAZOLE SODIUM
  41. PANTOPRAZOLE SODIUM [Suspect]
     Active Substance: PANTOPRAZOLE SODIUM
  42. PANTOPRAZOLE SODIUM [Suspect]
     Active Substance: PANTOPRAZOLE SODIUM
  43. PANTOPRAZOLE SODIUM [Suspect]
     Active Substance: PANTOPRAZOLE SODIUM
  44. PANTOPRAZOLE SODIUM [Suspect]
     Active Substance: PANTOPRAZOLE SODIUM
  45. PANTOPRAZOLE SODIUM [Suspect]
     Active Substance: PANTOPRAZOLE SODIUM
  46. PANTOPRAZOLE SODIUM [Suspect]
     Active Substance: PANTOPRAZOLE SODIUM
  47. PANTOPRAZOLE SODIUM [Suspect]
     Active Substance: PANTOPRAZOLE SODIUM
  48. PANTOPRAZOLE SODIUM [Suspect]
     Active Substance: PANTOPRAZOLE SODIUM
  49. PANTOPRAZOLE SODIUM [Suspect]
     Active Substance: PANTOPRAZOLE SODIUM
  50. PANTOPRAZOLE SODIUM [Suspect]
     Active Substance: PANTOPRAZOLE SODIUM
  51. PANTOPRAZOLE SODIUM [Suspect]
     Active Substance: PANTOPRAZOLE SODIUM
  52. PANTOPRAZOLE SODIUM [Suspect]
     Active Substance: PANTOPRAZOLE SODIUM
  53. PANTOPRAZOLE SODIUM [Suspect]
     Active Substance: PANTOPRAZOLE SODIUM
  54. PANTOPRAZOLE SODIUM [Suspect]
     Active Substance: PANTOPRAZOLE SODIUM
  55. PANTOPRAZOLE SODIUM [Suspect]
     Active Substance: PANTOPRAZOLE SODIUM
  56. PANTOPRAZOLE SODIUM [Suspect]
     Active Substance: PANTOPRAZOLE SODIUM
  57. PANTOPRAZOLE SODIUM [Suspect]
     Active Substance: PANTOPRAZOLE SODIUM
  58. PREVACID [Suspect]
     Active Substance: LANSOPRAZOLE
     Indication: Product used for unknown indication
  59. PREVACID [Suspect]
     Active Substance: LANSOPRAZOLE
  60. PREVACID [Suspect]
     Active Substance: LANSOPRAZOLE
  61. PREVACID [Suspect]
     Active Substance: LANSOPRAZOLE
  62. PREVACID [Suspect]
     Active Substance: LANSOPRAZOLE
  63. PREVACID [Suspect]
     Active Substance: LANSOPRAZOLE
  64. PREVACID [Suspect]
     Active Substance: LANSOPRAZOLE
  65. PREVACID [Suspect]
     Active Substance: LANSOPRAZOLE
  66. PREVACID [Suspect]
     Active Substance: LANSOPRAZOLE
  67. PREVACID [Suspect]
     Active Substance: LANSOPRAZOLE
     Indication: Product used for unknown indication
  68. PREVACID [Suspect]
     Active Substance: LANSOPRAZOLE
  69. PREVACID [Suspect]
     Active Substance: LANSOPRAZOLE
  70. RISEDRONATE SODIUM [Suspect]
     Active Substance: RISEDRONATE SODIUM
     Indication: Product used for unknown indication
  71. RISEDRONATE SODIUM [Suspect]
     Active Substance: RISEDRONATE SODIUM
  72. RISEDRONATE SODIUM [Suspect]
     Active Substance: RISEDRONATE SODIUM
  73. MORPHINE HYDROCHLORIDE [Suspect]
     Active Substance: MORPHINE HYDROCHLORIDE
     Indication: Product used for unknown indication
  74. MORPHINE HYDROCHLORIDE [Suspect]
     Active Substance: MORPHINE HYDROCHLORIDE
     Indication: Dyspnoea
  75. MORPHINE HYDROCHLORIDE [Suspect]
     Active Substance: MORPHINE HYDROCHLORIDE
  76. MORPHINE HYDROCHLORIDE [Suspect]
     Active Substance: MORPHINE HYDROCHLORIDE
  77. MORPHINE HYDROCHLORIDE [Suspect]
     Active Substance: MORPHINE HYDROCHLORIDE
  78. MORPHINE HYDROCHLORIDE [Suspect]
     Active Substance: MORPHINE HYDROCHLORIDE
  79. MORPHINE HYDROCHLORIDE [Suspect]
     Active Substance: MORPHINE HYDROCHLORIDE
  80. MORPHINE HYDROCHLORIDE [Suspect]
     Active Substance: MORPHINE HYDROCHLORIDE
  81. MORPHINE HYDROCHLORIDE [Suspect]
     Active Substance: MORPHINE HYDROCHLORIDE
  82. MORPHINE HYDROCHLORIDE [Suspect]
     Active Substance: MORPHINE HYDROCHLORIDE
  83. MORPHINE HYDROCHLORIDE [Suspect]
     Active Substance: MORPHINE HYDROCHLORIDE
  84. MORPHINE HYDROCHLORIDE [Suspect]
     Active Substance: MORPHINE HYDROCHLORIDE
  85. MORPHINE HYDROCHLORIDE [Suspect]
     Active Substance: MORPHINE HYDROCHLORIDE
  86. MORPHINE HYDROCHLORIDE [Suspect]
     Active Substance: MORPHINE HYDROCHLORIDE
  87. MORPHINE HYDROCHLORIDE [Suspect]
     Active Substance: MORPHINE HYDROCHLORIDE
  88. MORPHINE HYDROCHLORIDE [Suspect]
     Active Substance: MORPHINE HYDROCHLORIDE
  89. MORPHINE HYDROCHLORIDE [Suspect]
     Active Substance: MORPHINE HYDROCHLORIDE
  90. MORPHINE HYDROCHLORIDE [Suspect]
     Active Substance: MORPHINE HYDROCHLORIDE
  91. MORPHINE HYDROCHLORIDE [Suspect]
     Active Substance: MORPHINE HYDROCHLORIDE
  92. MORPHINE HYDROCHLORIDE [Suspect]
     Active Substance: MORPHINE HYDROCHLORIDE
  93. ACETAMINOPHEN [Suspect]
     Active Substance: ACETAMINOPHEN
     Indication: Product used for unknown indication
  94. ACETAMINOPHEN [Suspect]
     Active Substance: ACETAMINOPHEN
  95. ACETAMINOPHEN [Suspect]
     Active Substance: ACETAMINOPHEN
  96. ACETAMINOPHEN [Suspect]
     Active Substance: ACETAMINOPHEN
  97. LEVOTHYROXINE [Suspect]
     Active Substance: LEVOTHYROXINE
     Indication: Product used for unknown indication
  98. LEVOTHYROXINE [Suspect]
     Active Substance: LEVOTHYROXINE
  99. LEVOTHYROXINE [Suspect]
     Active Substance: LEVOTHYROXINE
  100. SYNTHROID [Suspect]
     Active Substance: LEVOTHYROXINE SODIUM
     Indication: Product used for unknown indication
  101. SYNTHROID [Suspect]
     Active Substance: LEVOTHYROXINE SODIUM
  102. SYNTHROID [Suspect]
     Active Substance: LEVOTHYROXINE SODIUM
  103. ATROVENT [Suspect]
     Active Substance: IPRATROPIUM BROMIDE
     Indication: Product used for unknown indication
  104. ATROVENT [Suspect]
     Active Substance: IPRATROPIUM BROMIDE
  105. ATROVENT [Suspect]
     Active Substance: IPRATROPIUM BROMIDE
  106. AZITHROMYCIN [Suspect]
     Active Substance: AZITHROMYCIN
     Indication: Product used for unknown indication
  107. AZITHROMYCIN [Suspect]
     Active Substance: AZITHROMYCIN
  108. AZITHROMYCIN [Suspect]
     Active Substance: AZITHROMYCIN
  109. BISACODYL [Suspect]
     Active Substance: BISACODYL
     Indication: Product used for unknown indication
  110. BISACODYL [Suspect]
     Active Substance: BISACODYL
  111. BISACODYL [Suspect]
     Active Substance: BISACODYL
  112. BISACODYL [Suspect]
     Active Substance: BISACODYL
  113. BISACODYL [Suspect]
     Active Substance: BISACODYL
  114. BISACODYL [Suspect]
     Active Substance: BISACODYL
  115. BISACODYL [Suspect]
     Active Substance: BISACODYL
  116. BISACODYL [Suspect]
     Active Substance: BISACODYL
  117. BISACODYL [Suspect]
     Active Substance: BISACODYL
  118. BISACODYL [Suspect]
     Active Substance: BISACODYL
  119. BISACODYL [Suspect]
     Active Substance: BISACODYL
  120. BISACODYL [Suspect]
     Active Substance: BISACODYL
  121. BISACODYL [Suspect]
     Active Substance: BISACODYL
  122. PULMICORT TURBUHALER [Suspect]
     Active Substance: BUDESONIDE
  123. PULMICORT TURBUHALER [Suspect]
     Active Substance: BUDESONIDE
  124. BUDESONIDE\FORMOTEROL FUMARATE [Suspect]
     Active Substance: BUDESONIDE\FORMOTEROL FUMARATE
  125. BUDESONIDE\FORMOTEROL FUMARATE [Suspect]
     Active Substance: BUDESONIDE\FORMOTEROL FUMARATE
  126. BUDESONIDE\FORMOTEROL FUMARATE [Suspect]
     Active Substance: BUDESONIDE\FORMOTEROL FUMARATE
  127. BUDESONIDE\FORMOTEROL FUMARATE [Suspect]
     Active Substance: BUDESONIDE\FORMOTEROL FUMARATE
  128. DOMPERIDONE [Suspect]
     Active Substance: DOMPERIDONE
     Indication: Product used for unknown indication
  129. DOMPERIDONE [Suspect]
     Active Substance: DOMPERIDONE
  130. DOMPERIDONE [Suspect]
     Active Substance: DOMPERIDONE
  131. DOMPERIDONE [Suspect]
     Active Substance: DOMPERIDONE
  132. DOMPERIDONE [Suspect]
     Active Substance: DOMPERIDONE
  133. DOMPERIDONE [Suspect]
     Active Substance: DOMPERIDONE
  134. FORMOTEROL FUMARATE [Suspect]
     Active Substance: FORMOTEROL FUMARATE
  135. FORMOTEROL FUMARATE [Suspect]
     Active Substance: FORMOTEROL FUMARATE
  136. NITROGLYCERIN [Suspect]
     Active Substance: NITROGLYCERIN
     Indication: Product used for unknown indication
  137. NITROGLYCERIN [Suspect]
     Active Substance: NITROGLYCERIN
  138. NITROGLYCERIN [Suspect]
     Active Substance: NITROGLYCERIN
  139. NITROGLYCERIN [Suspect]
     Active Substance: NITROGLYCERIN
  140. NITROGLYCERIN [Suspect]
     Active Substance: NITROGLYCERIN
  141. NITROGLYCERIN [Suspect]
     Active Substance: NITROGLYCERIN
  142. JUBLIA [Suspect]
     Active Substance: EFINACONAZOLE
     Indication: Product used for unknown indication
  143. JUBLIA [Suspect]
     Active Substance: EFINACONAZOLE
  144. JUBLIA [Suspect]
     Active Substance: EFINACONAZOLE
  145. JUBLIA [Suspect]
     Active Substance: EFINACONAZOLE
  146. JUBLIA [Suspect]
     Active Substance: EFINACONAZOLE
  147. JUBLIA [Suspect]
     Active Substance: EFINACONAZOLE
  148. JUBLIA [Suspect]
     Active Substance: EFINACONAZOLE
  149. JUBLIA [Suspect]
     Active Substance: EFINACONAZOLE
  150. JUBLIA [Suspect]
     Active Substance: EFINACONAZOLE
  151. MOMETASONE [Suspect]
     Active Substance: MOMETASONE
     Indication: Product used for unknown indication
  152. MOMETASONE [Suspect]
     Active Substance: MOMETASONE
  153. MOMETASONE [Suspect]
     Active Substance: MOMETASONE
  154. MONTELUKAST [Suspect]
     Active Substance: MONTELUKAST
     Indication: Product used for unknown indication
  155. MONTELUKAST [Suspect]
     Active Substance: MONTELUKAST
     Indication: Asthma
     Dosage: 100 MILLIGRAM, QD
  156. MONTELUKAST [Suspect]
     Active Substance: MONTELUKAST
     Dosage: 10 MILLIGRAM, QD
  157. MONTELUKAST [Suspect]
     Active Substance: MONTELUKAST
  158. MONTELUKAST [Suspect]
     Active Substance: MONTELUKAST
  159. NASONEX [Suspect]
     Active Substance: MOMETASONE FUROATE
     Indication: Product used for unknown indication
  160. NASONEX [Suspect]
     Active Substance: MOMETASONE FUROATE
  161. NASONEX [Suspect]
     Active Substance: MOMETASONE FUROATE
  162. NASONEX [Suspect]
     Active Substance: MOMETASONE FUROATE
  163. NASONEX [Suspect]
     Active Substance: MOMETASONE FUROATE
  164. NASONEX [Suspect]
     Active Substance: MOMETASONE FUROATE
  165. NASONEX [Suspect]
     Active Substance: MOMETASONE FUROATE
  166. NASONEX [Suspect]
     Active Substance: MOMETASONE FUROATE
  167. NASONEX [Suspect]
     Active Substance: MOMETASONE FUROATE
  168. NASONEX [Suspect]
     Active Substance: MOMETASONE FUROATE
  169. NASONEX [Suspect]
     Active Substance: MOMETASONE FUROATE
  170. NASONEX [Suspect]
     Active Substance: MOMETASONE FUROATE
  171. NITROGLYCERIN [Suspect]
     Active Substance: NITROGLYCERIN
     Indication: Product used for unknown indication
  172. NITROGLYCERIN [Suspect]
     Active Substance: NITROGLYCERIN
  173. NITROGLYCERIN [Suspect]
     Active Substance: NITROGLYCERIN
  174. NUCALA [Suspect]
     Active Substance: MEPOLIZUMAB
     Indication: Asthma
  175. NUCALA [Suspect]
     Active Substance: MEPOLIZUMAB
  176. OMALIZUMAB [Suspect]
     Active Substance: OMALIZUMAB
     Indication: Product used for unknown indication
  177. OMALIZUMAB [Suspect]
     Active Substance: OMALIZUMAB
  178. OMALIZUMAB [Suspect]
     Active Substance: OMALIZUMAB
  179. OMALIZUMAB [Suspect]
     Active Substance: OMALIZUMAB
  180. OMALIZUMAB [Suspect]
     Active Substance: OMALIZUMAB
  181. OMALIZUMAB [Suspect]
     Active Substance: OMALIZUMAB
  182. PNEUMOCOCCAL VACCINE POLYVALENT NOS [Suspect]
     Active Substance: PNEUMOCOCCAL VACCINE, POLYVALENT
     Indication: Immunisation
  183. PNEUMOCOCCAL VACCINE POLYVALENT NOS [Suspect]
     Active Substance: PNEUMOCOCCAL VACCINE, POLYVALENT
  184. PNEUMOCOCCAL VACCINE POLYVALENT NOS [Suspect]
     Active Substance: PNEUMOCOCCAL VACCINE, POLYVALENT
  185. PNEUMOCOCCAL VACCINE POLYVALENT NOS [Suspect]
     Active Substance: PNEUMOCOCCAL VACCINE, POLYVALENT
  186. PNEUMOCOCCAL VACCINE POLYVALENT NOS [Suspect]
     Active Substance: PNEUMOCOCCAL VACCINE, POLYVALENT
  187. PNEUMOCOCCAL VACCINE POLYVALENT NOS [Suspect]
     Active Substance: PNEUMOCOCCAL VACCINE, POLYVALENT
  188. PRAMIPEXOLE [Suspect]
     Active Substance: PRAMIPEXOLE
     Indication: Product used for unknown indication
  189. PRAMIPEXOLE [Suspect]
     Active Substance: PRAMIPEXOLE
  190. PRAMIPEXOLE [Suspect]
     Active Substance: PRAMIPEXOLE
  191. PRAMIPEXOLE [Suspect]
     Active Substance: PRAMIPEXOLE
  192. PRAMIPEXOLE [Suspect]
     Active Substance: PRAMIPEXOLE
  193. PRAMIPEXOLE [Suspect]
     Active Substance: PRAMIPEXOLE
  194. PRAMIPEXOLE [Suspect]
     Active Substance: PRAMIPEXOLE
  195. PRAMIPEXOLE [Suspect]
     Active Substance: PRAMIPEXOLE
  196. PREGABALIN [Suspect]
     Active Substance: PREGABALIN
     Indication: Product used for unknown indication
  197. PREGABALIN [Suspect]
     Active Substance: PREGABALIN
  198. PREGABALIN [Suspect]
     Active Substance: PREGABALIN
  199. PREGABALIN [Suspect]
     Active Substance: PREGABALIN
  200. PREVNAR 13 [Suspect]
     Active Substance: STREPTOCOCCUS PNEUMONIAE TYPE 1 CAPSULAR POLYSACCHARIDE DIPHTHERIA CRM197 PROTEIN CONJUGATE ANTIGEN\
     Indication: Immunisation
  201. PREVNAR 13 [Suspect]
     Active Substance: STREPTOCOCCUS PNEUMONIAE TYPE 1 CAPSULAR POLYSACCHARIDE DIPHTHERIA CRM197 PROTEIN CONJUGATE ANTIGEN\
  202. PREVNAR 13 [Suspect]
     Active Substance: STREPTOCOCCUS PNEUMONIAE TYPE 1 CAPSULAR POLYSACCHARIDE DIPHTHERIA CRM197 PROTEIN CONJUGATE ANTIGEN\
  203. PREVNAR 13 [Suspect]
     Active Substance: STREPTOCOCCUS PNEUMONIAE TYPE 1 CAPSULAR POLYSACCHARIDE DIPHTHERIA CRM197 PROTEIN CONJUGATE ANTIGEN\
  204. PREVNAR 13 [Suspect]
     Active Substance: STREPTOCOCCUS PNEUMONIAE TYPE 1 CAPSULAR POLYSACCHARIDE DIPHTHERIA CRM197 PROTEIN CONJUGATE ANTIGEN\
  205. PYRILAMINE MALEATE [Suspect]
     Active Substance: PYRILAMINE MALEATE
     Indication: Product used for unknown indication
  206. PYRILAMINE MALEATE [Suspect]
     Active Substance: PYRILAMINE MALEATE
  207. PYRILAMINE MALEATE [Suspect]
     Active Substance: PYRILAMINE MALEATE
  208. PYRILAMINE MALEATE [Suspect]
     Active Substance: PYRILAMINE MALEATE
  209. PYRILAMINE MALEATE [Suspect]
     Active Substance: PYRILAMINE MALEATE
  210. PYRILAMINE MALEATE [Suspect]
     Active Substance: PYRILAMINE MALEATE
  211. PYRILAMINE MALEATE [Suspect]
     Active Substance: PYRILAMINE MALEATE
  212. SEROQUEL [Suspect]
     Active Substance: QUETIAPINE FUMARATE
  213. SEROQUEL [Suspect]
     Active Substance: QUETIAPINE FUMARATE
  214. RANITIDINE HYDROCHLORIDE [Suspect]
     Active Substance: RANITIDINE HYDROCHLORIDE
     Indication: Influenza
  215. RANITIDINE HYDROCHLORIDE [Suspect]
     Active Substance: RANITIDINE HYDROCHLORIDE
     Indication: Gastrooesophageal reflux disease
  216. RANITIDINE HYDROCHLORIDE [Suspect]
     Active Substance: RANITIDINE HYDROCHLORIDE
  217. RANITIDINE HYDROCHLORIDE [Suspect]
     Active Substance: RANITIDINE HYDROCHLORIDE
  218. RANITIDINE HYDROCHLORIDE [Suspect]
     Active Substance: RANITIDINE HYDROCHLORIDE
  219. RANITIDINE HYDROCHLORIDE [Suspect]
     Active Substance: RANITIDINE HYDROCHLORIDE
  220. RANITIDINE HYDROCHLORIDE [Suspect]
     Active Substance: RANITIDINE HYDROCHLORIDE
  221. ROSUVASTATIN [Suspect]
     Active Substance: ROSUVASTATIN
  222. ROSUVASTATIN [Suspect]
     Active Substance: ROSUVASTATIN
  223. ALBUTEROL [Suspect]
     Active Substance: ALBUTEROL
     Indication: Product used for unknown indication
  224. ALBUTEROL [Suspect]
     Active Substance: ALBUTEROL
  225. ALBUTEROL [Suspect]
     Active Substance: ALBUTEROL
  226. ALBUTEROL [Suspect]
     Active Substance: ALBUTEROL
  227. SENNA LEAF [Suspect]
     Active Substance: SENNA LEAF
     Indication: Product used for unknown indication
  228. SENNA LEAF [Suspect]
     Active Substance: SENNA LEAF
  229. SENNA LEAF [Suspect]
     Active Substance: SENNA LEAF
  230. SENNOSIDES [Suspect]
     Active Substance: SENNOSIDES
     Indication: Product used for unknown indication
  231. SENNOSIDES [Suspect]
     Active Substance: SENNOSIDES
  232. SENNOSIDES [Suspect]
     Active Substance: SENNOSIDES
  233. SENNOSIDES [Suspect]
     Active Substance: SENNOSIDES
  234. SENNOSIDES [Suspect]
     Active Substance: SENNOSIDES
  235. SENOKOT [Suspect]
     Active Substance: SENNOSIDES
     Indication: Product used for unknown indication
  236. SENOKOT [Suspect]
     Active Substance: SENNOSIDES
  237. SENOKOT [Suspect]
     Active Substance: SENNOSIDES
  238. SENOKOT [Suspect]
     Active Substance: SENNOSIDES
  239. SENOKOT [Suspect]
     Active Substance: SENNOSIDES
  240. SENOKOT [Suspect]
     Active Substance: SENNOSIDES
  241. SINGULAIR [Suspect]
     Active Substance: MONTELUKAST SODIUM
     Indication: Product used for unknown indication
     Dosage: 100 MILLIGRAM, QD
  242. SINGULAIR [Suspect]
     Active Substance: MONTELUKAST SODIUM
     Dosage: 10 MILLIGRAM, QD
  243. SINGULAIR [Suspect]
     Active Substance: MONTELUKAST SODIUM
  244. SINGULAIR [Suspect]
     Active Substance: MONTELUKAST SODIUM
  245. SINGULAIR [Suspect]
     Active Substance: MONTELUKAST SODIUM
  246. SPIRIVA [Suspect]
     Active Substance: TIOTROPIUM BROMIDE MONOHYDRATE
     Indication: Product used for unknown indication
  247. SPIRIVA [Suspect]
     Active Substance: TIOTROPIUM BROMIDE MONOHYDRATE
  248. SPIRIVA [Suspect]
     Active Substance: TIOTROPIUM BROMIDE MONOHYDRATE
  249. SPIRIVA [Suspect]
     Active Substance: TIOTROPIUM BROMIDE MONOHYDRATE
  250. SPIRIVA [Suspect]
     Active Substance: TIOTROPIUM BROMIDE MONOHYDRATE
  251. SPIRIVA [Suspect]
     Active Substance: TIOTROPIUM BROMIDE MONOHYDRATE
  252. SPIRIVA [Suspect]
     Active Substance: TIOTROPIUM BROMIDE MONOHYDRATE
  253. SPIRIVA [Suspect]
     Active Substance: TIOTROPIUM BROMIDE MONOHYDRATE
  254. SPIRIVA [Suspect]
     Active Substance: TIOTROPIUM BROMIDE MONOHYDRATE
  255. SPIRIVA [Suspect]
     Active Substance: TIOTROPIUM BROMIDE MONOHYDRATE
  256. SPIRIVA [Suspect]
     Active Substance: TIOTROPIUM BROMIDE MONOHYDRATE
  257. SPIRIVA [Suspect]
     Active Substance: TIOTROPIUM BROMIDE MONOHYDRATE
  258. SPIRIVA [Suspect]
     Active Substance: TIOTROPIUM BROMIDE MONOHYDRATE
  259. SPIRIVA [Suspect]
     Active Substance: TIOTROPIUM BROMIDE MONOHYDRATE
  260. SPIRIVA [Suspect]
     Active Substance: TIOTROPIUM BROMIDE MONOHYDRATE
  261. MORPHINE SULFATE [Suspect]
     Active Substance: MORPHINE SULFATE
     Indication: Product used for unknown indication
  262. TRAZODONE [Suspect]
     Active Substance: TRAZODONE HYDROCHLORIDE
     Indication: Product used for unknown indication
  263. TRAZODONE [Suspect]
     Active Substance: TRAZODONE HYDROCHLORIDE
  264. TRAZODONE [Suspect]
     Active Substance: TRAZODONE HYDROCHLORIDE
  265. TRAZODONE [Suspect]
     Active Substance: TRAZODONE HYDROCHLORIDE
  266. TRAZODONE [Suspect]
     Active Substance: TRAZODONE HYDROCHLORIDE
  267. TRAZODONE [Suspect]
     Active Substance: TRAZODONE HYDROCHLORIDE
  268. ALBUTEROL [Suspect]
     Active Substance: ALBUTEROL
  269. VITAMIN D [Suspect]
     Active Substance: VITAMIN D NOS
     Indication: Product used for unknown indication
  270. VITAMIN D [Suspect]
     Active Substance: VITAMIN D NOS
  271. VITAMIN D [Suspect]
     Active Substance: VITAMIN D NOS
  272. ZOPICLONE [Suspect]
     Active Substance: ZOPICLONE
     Indication: Product used for unknown indication
  273. ZOPICLONE [Suspect]
     Active Substance: ZOPICLONE
  274. ZOPICLONE [Suspect]
     Active Substance: ZOPICLONE
  275. CANDESARTAN [Suspect]
     Active Substance: CANDESARTAN
     Indication: Product used for unknown indication
     Dosage: 8 MILLIGRAM, QD
  276. PULMICORT TURBUHALER [Suspect]
     Active Substance: BUDESONIDE
     Indication: Product used for unknown indication
  277. PULMICORT TURBUHALER [Suspect]
     Active Substance: BUDESONIDE
  278. BUDESONIDE\FORMOTEROL FUMARATE [Suspect]
     Active Substance: BUDESONIDE\FORMOTEROL FUMARATE
     Indication: Product used for unknown indication
  279. BUDESONIDE\FORMOTEROL FUMARATE [Suspect]
     Active Substance: BUDESONIDE\FORMOTEROL FUMARATE
  280. BUDESONIDE\FORMOTEROL FUMARATE [Suspect]
     Active Substance: BUDESONIDE\FORMOTEROL FUMARATE
  281. BUDESONIDE\FORMOTEROL FUMARATE [Suspect]
     Active Substance: BUDESONIDE\FORMOTEROL FUMARATE
  282. BUDESONIDE\FORMOTEROL FUMARATE [Suspect]
     Active Substance: BUDESONIDE\FORMOTEROL FUMARATE
  283. BUDESONIDE\FORMOTEROL FUMARATE [Suspect]
     Active Substance: BUDESONIDE\FORMOTEROL FUMARATE
  284. BUDESONIDE\FORMOTEROL FUMARATE [Suspect]
     Active Substance: BUDESONIDE\FORMOTEROL FUMARATE
  285. FORMOTEROL FUMARATE [Suspect]
     Active Substance: FORMOTEROL FUMARATE
     Indication: Asthma
  286. FORMOTEROL FUMARATE [Suspect]
     Active Substance: FORMOTEROL FUMARATE
  287. FORMOTEROL FUMARATE [Suspect]
     Active Substance: FORMOTEROL FUMARATE
  288. SEROQUEL [Suspect]
     Active Substance: QUETIAPINE FUMARATE
     Indication: Product used for unknown indication
  289. SEROQUEL [Suspect]
     Active Substance: QUETIAPINE FUMARATE
  290. ROSUVASTATIN CALCIUM [Suspect]
     Active Substance: ROSUVASTATIN CALCIUM
     Indication: Product used for unknown indication
  291. ROSUVASTATIN CALCIUM [Suspect]
     Active Substance: ROSUVASTATIN CALCIUM
  292. ROSUVASTATIN CALCIUM [Suspect]
     Active Substance: ROSUVASTATIN CALCIUM
  293. VENTOLIN [Suspect]
     Active Substance: ALBUTEROL SULFATE
     Indication: Asthma
  294. VENTOLIN [Suspect]
     Active Substance: ALBUTEROL SULFATE
  295. TIOTROPIUM BROMIDE MONOHYDRATE [Suspect]
     Active Substance: TIOTROPIUM BROMIDE MONOHYDRATE
     Indication: Product used for unknown indication
     Dosage: 1 DOSAGE FORM, QD
  296. PULMICORT TURBUHALER [Suspect]
     Active Substance: BUDESONIDE
     Indication: Product used for unknown indication
  297. PULMICORT TURBUHALER [Suspect]
     Active Substance: BUDESONIDE
  298. SEROQUEL [Suspect]
     Active Substance: QUETIAPINE FUMARATE
     Indication: Product used for unknown indication
  299. SEROQUEL [Suspect]
     Active Substance: QUETIAPINE FUMARATE

REACTIONS (43)
  - Anaemia [Not Recovered/Not Resolved]
  - Aspiration [Not Recovered/Not Resolved]
  - Asthenia [Not Recovered/Not Resolved]
  - Asthma [Not Recovered/Not Resolved]
  - Blood calcium increased [Not Recovered/Not Resolved]
  - Blood creatinine increased [Not Recovered/Not Resolved]
  - Blood test abnormal [Not Recovered/Not Resolved]
  - Bronchiectasis [Not Recovered/Not Resolved]
  - Bronchopulmonary aspergillosis allergic [Not Recovered/Not Resolved]
  - Constipation [Not Recovered/Not Resolved]
  - Cough [Not Recovered/Not Resolved]
  - Drug hypersensitivity [Not Recovered/Not Resolved]
  - Drug ineffective [Not Recovered/Not Resolved]
  - Dyspnoea [Not Recovered/Not Resolved]
  - Fatigue [Not Recovered/Not Resolved]
  - Gastrooesophageal reflux disease [Not Recovered/Not Resolved]
  - Haemoptysis [Not Recovered/Not Resolved]
  - Headache [Not Recovered/Not Resolved]
  - Hypoxia [Not Recovered/Not Resolved]
  - Liver function test increased [Not Recovered/Not Resolved]
  - Lower respiratory tract infection [Not Recovered/Not Resolved]
  - Lung opacity [Not Recovered/Not Resolved]
  - Musculoskeletal stiffness [Not Recovered/Not Resolved]
  - Obstructive airways disorder [Not Recovered/Not Resolved]
  - Oedema peripheral [Not Recovered/Not Resolved]
  - Pain [Not Recovered/Not Resolved]
  - Pleural effusion [Not Recovered/Not Resolved]
  - Pleuritic pain [Unknown]
  - Pneumonia [Not Recovered/Not Resolved]
  - Product dose omission issue [Not Recovered/Not Resolved]
  - Pulmonary fibrosis [Not Recovered/Not Resolved]
  - Pulmonary mass [Not Recovered/Not Resolved]
  - Pyrexia [Not Recovered/Not Resolved]
  - Rales [Not Recovered/Not Resolved]
  - Sputum discoloured [Not Recovered/Not Resolved]
  - Total lung capacity decreased [Not Recovered/Not Resolved]
  - Transaminases increased [Not Recovered/Not Resolved]
  - Tremor [Not Recovered/Not Resolved]
  - Upper respiratory tract infection [Not Recovered/Not Resolved]
  - Wheezing [Not Recovered/Not Resolved]
  - Abdominal pain upper [Not Recovered/Not Resolved]
  - General physical health deterioration [Not Recovered/Not Resolved]
  - Pneumococcal infection [Unknown]
